FAERS Safety Report 11392286 (Version 1)
Quarter: 2015Q3

REPORT INFORMATION
  Report Type: Spontaneous
  Country: US (occurrence: US)
  Receive Date: 20150818
  Receipt Date: 20150818
  Transmission Date: 20151125
  Serious: No
  Sender: FDA-Public Use
  Company Number: US-ACTELION PHARMACEUTICALS US, INC.-A-NJ2015-121893

PATIENT
  Age: 82 Year
  Sex: Male

DRUGS (21)
  1. REMERON [Concomitant]
     Active Substance: MIRTAZAPINE
  2. DILANTIN [Concomitant]
     Active Substance: PHENYTOIN
  3. AVODART [Concomitant]
     Active Substance: DUTASTERIDE
  4. CLARITIN [Concomitant]
     Active Substance: LORATADINE
  5. MIRALAX [Concomitant]
     Active Substance: POLYETHYLENE GLYCOL 3350
  6. VITAMIN D [Concomitant]
     Active Substance: CHOLECALCIFEROL
  7. ASA [Concomitant]
     Active Substance: ASPIRIN
  8. SENNA [Concomitant]
     Active Substance: SENNA LEAF\SENNOSIDES\SENNOSIDES A AND B
  9. TRIAMCINOLONE [Concomitant]
     Active Substance: TRIAMCINOLONE
  10. KLOR-CON [Concomitant]
     Active Substance: POTASSIUM CHLORIDE
  11. PLAVIX [Concomitant]
     Active Substance: CLOPIDOGREL BISULFATE
  12. OMEPRAZOLE. [Concomitant]
     Active Substance: OMEPRAZOLE
  13. LASIX [Concomitant]
     Active Substance: FUROSEMIDE
  14. EFFEXOR [Concomitant]
     Active Substance: VENLAFAXINE HYDROCHLORIDE
  15. FLOMAX [Concomitant]
     Active Substance: TAMSULOSIN HYDROCHLORIDE
  16. VALCHLOR [Suspect]
     Active Substance: MECHLORETHAMINE
     Indication: MYCOSIS FUNGOIDES
     Dosage: UNK, QD
     Route: 061
     Dates: start: 201410
  17. ZYPREXA [Concomitant]
     Active Substance: OLANZAPINE
  18. DIAZEPAM. [Concomitant]
     Active Substance: DIAZEPAM
  19. OXYBUTYNIN [Concomitant]
     Active Substance: OXYBUTYNIN
  20. MUCINEX [Concomitant]
     Active Substance: GUAIFENESIN
  21. GABAPENTIN. [Concomitant]
     Active Substance: GABAPENTIN

REACTIONS (2)
  - Dermatitis contact [Recovered/Resolved]
  - Application site vesicles [Recovered/Resolved]

NARRATIVE: CASE EVENT DATE: 20150622
